FAERS Safety Report 7489557-4 (Version None)
Quarter: 2011Q2

REPORT INFORMATION
  Report Type: 
  Country: None (occurrence: None)
  Receive Date: 20110519
  Receipt Date: 20110510
  Transmission Date: 20111010
  Serious: Yes (Hospitalization)
  Sender: FDA-Public Use
  Company Number: US-BIOGENIDEC-2011BI011515

PATIENT
  Age: 43 Year
  Sex: Male

DRUGS (11)
  1. XANAX [Concomitant]
  2. METFORMIN HCL [Concomitant]
  3. LISINOPRIL [Concomitant]
  4. SEROQUEL [Concomitant]
  5. TYSABRI [Suspect]
     Indication: MULTIPLE SCLEROSIS
     Route: 042
     Dates: start: 20091009
  6. OXYCODONE HCL [Concomitant]
  7. IBUPROFEN [Concomitant]
  8. CYCLOBENZAPRINE [Concomitant]
  9. LEXAPRO [Concomitant]
  10. GLIMEPIRIDE [Concomitant]
  11. FLURAZEPAM [Concomitant]

REACTIONS (4)
  - OSTEOMYELITIS [None]
  - MOBILITY DECREASED [None]
  - PERIODONTAL INFECTION [None]
  - TOOTHACHE [None]
